FAERS Safety Report 8650345 (Version 2)
Quarter: 2013Q4

REPORT INFORMATION
  Report Type: Report from Study
  Country: US (occurrence: US)
  Receive Date: 20120705
  Receipt Date: 20131127
  Transmission Date: 20140711
  Serious: Yes (Other)
  Sender: FDA-Public Use
  Company Number: PHEH2012US011135

PATIENT
  Age: 52 Year
  Sex: Female
  Weight: 70.75 kg

DRUGS (10)
  1. GILENYA [Suspect]
     Indication: RELAPSING-REMITTING MULTIPLE SCLEROSIS
     Dosage: 0.5 MG, QD
     Route: 048
     Dates: start: 20120327, end: 20120529
  2. CITALOPRAM [Concomitant]
     Dosage: 1.5 DF, QD
     Route: 048
  3. FLUTICASONE [Concomitant]
     Dosage: 2 DF, UNK
     Route: 045
  4. GABAPENTIN [Concomitant]
     Dosage: 300 MG, QHS
     Route: 048
  5. GLYBURIDE [Concomitant]
     Dosage: 1 DF, BID
     Route: 048
  6. LATANOPROST [Concomitant]
     Dosage: 1 DRP, QHS
     Route: 047
  7. METFORMIN [Concomitant]
     Dosage: 3 DF, UNK
     Route: 048
  8. TIZANIDINE [Concomitant]
     Dosage: 2 DF, QHS
     Route: 048
  9. CHANTIX [Concomitant]
     Indication: TOBACCO USER
     Dosage: UNK UKN, UNK
  10. TYLENOL [Concomitant]

REACTIONS (4)
  - Emphysema [Recovering/Resolving]
  - Dyspnoea [Recovered/Resolved]
  - Lung hyperinflation [Recovering/Resolving]
  - Carbon monoxide diffusing capacity decreased [Recovering/Resolving]
